FAERS Safety Report 7814148-2 (Version None)
Quarter: 2011Q4

REPORT INFORMATION
  Report Type: 
  Country: None (occurrence: None)
  Receive Date: 20111014
  Receipt Date: 20111004
  Transmission Date: 20120403
  Serious: Yes (Hospitalization)
  Sender: FDA-Public Use
  Company Number: FR-PFIZER INC-2011237069

PATIENT
  Age: 52 Year
  Sex: Male

DRUGS (3)
  1. GEMTUZUMAB OZOGAMICIN [Suspect]
     Indication: ACUTE LEUKAEMIA
     Dosage: 11.4 MG, 1X/DAY
     Route: 042
     Dates: start: 20100329, end: 20100329
  2. CYTARABINE [Suspect]
     Indication: ACUTE LEUKAEMIA
     Dosage: 380 MG, 1X/DAY
     Route: 042
     Dates: start: 20100325, end: 20100331
  3. CERUBIDINE [Suspect]
     Indication: ACUTE LEUKAEMIA
     Dosage: 114 MG, 1X/DAY
     Route: 042
     Dates: start: 20100325, end: 20100327

REACTIONS (2)
  - SEPSIS [None]
  - DEVICE RELATED INFECTION [None]
